FAERS Safety Report 5590793-2 (Version None)
Quarter: 2008Q1

REPORT INFORMATION
  Report Type: 
  Country: None (occurrence: None)
  Receive Date: 20080114
  Receipt Date: 20080108
  Transmission Date: 20080703
  Serious: Yes (Hospitalization)
  Sender: FDA-Public Use
  Company Number: GB-GILEAD-2008-0014892

PATIENT
  Sex: Male
  Weight: 98.972 kg

DRUGS (12)
  1. VIREAD [Suspect]
     Indication: HIV INFECTION
     Dates: start: 20050708
  2. DARUNAVIR [Suspect]
     Indication: HIV INFECTION
     Dates: start: 20040707, end: 20050410
  3. DARUNAVIR [Suspect]
     Dates: start: 20050524, end: 20061209
  4. DARUNAVIR [Suspect]
     Route: 048
     Dates: start: 20070319
  5. RITONAVIR [Concomitant]
     Dates: start: 20040707
  6. RITONAVIR [Concomitant]
     Dates: start: 20050524
  7. RITONAVIR [Concomitant]
     Dates: start: 20070319
  8. LAMIVUDINE [Concomitant]
     Indication: HIV INFECTION
     Route: 048
  9. BACTRIM [Concomitant]
     Indication: ANTIFUNGAL PROPHYLAXIS
     Route: 048
  10. MULTI-VITAMIN [Concomitant]
     Indication: ROUTINE HEALTH MAINTENANCE
  11. RISPERIDONE [Concomitant]
     Route: 048
     Dates: start: 20060703
  12. DIVALPROEX SODIUM [Concomitant]
     Dates: start: 20060201

REACTIONS (2)
  - CHOLELITHIASIS [None]
  - PANCREATITIS [None]
